FAERS Safety Report 4960583-X (Version None)
Quarter: 2006Q2

REPORT INFORMATION
  Report Type: 
  Country: None (occurrence: None)
  Receive Date: 20060403
  Receipt Date: 20050919
  Transmission Date: 20061013
  Serious: Yes (Hospitalization)
  Sender: FDA-Public Use
  Company Number: US-MERCK-0509USA02941

PATIENT
  Age: 50 Year
  Sex: Male
  Weight: 93 kg

DRUGS (1)
  1. VIOXX [Suspect]
     Indication: ARTHRITIS
     Route: 048
     Dates: start: 20000107, end: 20011101

REACTIONS (5)
  - ARTHRITIS [None]
  - CARDIAC ARREST [None]
  - MYOCARDIAL INFARCTION [None]
  - OSTEOARTHRITIS [None]
  - VENTRICULAR FIBRILLATION [None]
